FAERS Safety Report 19272281 (Version 1)
Quarter: 2021Q2

REPORT INFORMATION
  Report Type: Spontaneous
  Country: US (occurrence: US)
  Receive Date: 20210519
  Receipt Date: 20210519
  Transmission Date: 20210717
  Serious: No
  Sender: FDA-Public Use
  Company Number: US-ASTRAZENECA-2021A193000

PATIENT
  Age: 25867 Day
  Sex: Male
  Weight: 72.6 kg

DRUGS (1)
  1. SYMBICORT [Suspect]
     Active Substance: BUDESONIDE\FORMOTEROL FUMARATE DIHYDRATE
     Indication: EMPHYSEMA
     Dosage: 160MCG/4.5MCG,TWICE DAILY AS NEEDED AS REQUIRED
     Route: 055

REACTIONS (4)
  - Off label use [Not Recovered/Not Resolved]
  - Device malfunction [Unknown]
  - Visual impairment [Unknown]
  - Drug dose omission by device [Unknown]

NARRATIVE: CASE EVENT DATE: 20210316
